FAERS Safety Report 7012199-1 (Version None)
Quarter: 2010Q3

REPORT INFORMATION
  Report Type: 
  Country: None (occurrence: None)
  Receive Date: 20100924
  Receipt Date: 20100913
  Transmission Date: 20110219
  Serious: No
  Sender: FDA-Public Use
  Company Number: DE-ELI_LILLY_AND_COMPANY-DE201006002996

PATIENT
  Age: 45 Year
  Sex: Female
  Weight: 111 kg

DRUGS (21)
  1. CYMBALTA [Suspect]
     Indication: DEPRESSION
     Dosage: 60 MG, DAILY (1/D)
     Route: 048
     Dates: end: 20100126
  2. ATOSIL [Concomitant]
     Dosage: 125 MG, DAILY (1/D)
     Route: 048
     Dates: start: 20091211, end: 20091229
  3. ATOSIL [Concomitant]
     Dosage: 75 MG, DAILY (1/D)
     Route: 048
     Dates: start: 20100102, end: 20100121
  4. ATOSIL [Concomitant]
     Dosage: 225 MG, UNK
     Dates: start: 20100112, end: 20100112
  5. ATOSIL [Concomitant]
     Dosage: 175 MG, UNK
     Dates: start: 20100113, end: 20100113
  6. ATOSIL [Concomitant]
     Dosage: 100 MG, UNK
     Dates: start: 20100122, end: 20100122
  7. ATOSIL [Concomitant]
     Dosage: 200 MG, UNK
     Route: 048
     Dates: start: 20100123, end: 20100125
  8. PANTOPRAZOLE SODIUM [Concomitant]
     Dosage: 40 MG, DAILY (1/D)
     Route: 048
  9. ZOLPIDEM TARTRATE [Concomitant]
     Dosage: 20 MG, DAILY (1/D)
     Route: 048
     Dates: start: 20091210
  10. PRAVASTATIN [Concomitant]
     Dosage: 20 MG, DAILY (1/D)
     Route: 048
  11. VITAMIN B-12 [Concomitant]
     Dosage: UNK, DAILY (1/D)
     Route: 048
     Dates: start: 20091214
  12. MIRTAZAPIN [Concomitant]
     Dosage: 30 MG, DAILY (1/D)
     Route: 048
     Dates: end: 20100224
  13. TAXILAN [Concomitant]
     Dosage: 250 MG, DAILY (1/D)
     Route: 048
     Dates: end: 20091230
  14. TAXILAN [Concomitant]
     Dosage: 300 MG, DAILY (1/D)
     Route: 048
     Dates: start: 20091231, end: 20100101
  15. TAXILAN [Concomitant]
     Dosage: 325 MG, DAILY (1/D)
     Route: 048
     Dates: start: 20100102
  16. BUSCOPAN [Concomitant]
     Dosage: 20 MG, AS NEEDED
     Route: 048
  17. LORAZEPAM [Concomitant]
     Dosage: 7 MG, AS NEEDED
  18. DIAZEPAM [Concomitant]
     Dosage: 10 MG, AS NEEDED
     Route: 048
  19. DIPIPERON [Concomitant]
     Dosage: 80 MG, AS NEEDED
     Route: 048
  20. MARCUMAR [Concomitant]
     Dosage: UNK, DAILY (1/D)
     Route: 048
  21. ANAFRANIL [Concomitant]

REACTIONS (1)
  - INTERNATIONAL NORMALISED RATIO INCREASED [None]
